FAERS Safety Report 4520079-6 (Version None)
Quarter: 2004Q4

REPORT INFORMATION
  Report Type: 
  Country: None (occurrence: None)
  Receive Date: 20041029
  Receipt Date: 20040728
  Transmission Date: 20050328
  Serious: No
  Sender: FDA-Public Use
  Company Number: 2004-119033-NL

PATIENT
  Age: 34 Year
  Sex: Female
  Weight: 47.2 kg

DRUGS (3)
  1. NUVARING [Suspect]
     Indication: CONTRACEPTION
     Dosage: DF DAILY, VAGINAL
     Route: 067
     Dates: start: 20040201
  2. LAMISIL [Concomitant]
  3. PRENATAL VITAMINS [Concomitant]

REACTIONS (1)
  - METRORRHAGIA [None]
